FAERS Safety Report 4738469-5 (Version None)
Quarter: 2005Q3

REPORT INFORMATION
  Report Type: 
  Country: None (occurrence: None)
  Receive Date: 20050809
  Receipt Date: 20050802
  Transmission Date: 20060218
  Serious: Yes (Death, Life-Threatening, Hospitalization)
  Sender: FDA-Public Use
  Company Number: JP-JNJFOC-20050506245

PATIENT
  Age: 66 Year
  Sex: Male

DRUGS (27)
  1. OFLOCET [Suspect]
     Indication: PNEUMONIA
     Route: 048
     Dates: start: 20050310, end: 20050321
  2. ATARAX [Suspect]
     Indication: DRUG USE FOR UNKNOWN INDICATION
     Route: 048
     Dates: start: 20050310, end: 20050326
  3. IOPAMIRON [Suspect]
     Indication: DRUG USE FOR UNKNOWN INDICATION
     Route: 042
     Dates: start: 20050322, end: 20050322
  4. AUGMENTIN '125' [Suspect]
     Route: 048
  5. AUGMENTIN '125' [Suspect]
     Indication: PNEUMONIA
     Route: 048
  6. EUPANTOL [Suspect]
     Indication: DRUG USE FOR UNKNOWN INDICATION
     Route: 048
     Dates: start: 20050310, end: 20050326
  7. ALLOPURINOL [Concomitant]
     Indication: GOUT
     Route: 048
  8. EFFERALGAN [Concomitant]
  9. EFFERALGAN [Concomitant]
  10. ELISOR [Concomitant]
  11. ELISOR [Concomitant]
  12. ELISOR [Concomitant]
  13. COVERSYL [Concomitant]
  14. COVERSYL [Concomitant]
  15. COVERSYL [Concomitant]
  16. FORLAX [Concomitant]
  17. FORLAX [Concomitant]
  18. EDUCTYL [Concomitant]
  19. EDUCTYL [Concomitant]
  20. DURAGESIC-100 [Concomitant]
  21. DURAGESIC-100 [Concomitant]
  22. LOVENOX [Concomitant]
  23. CORTANCYL [Concomitant]
  24. SEVREDOL [Concomitant]
  25. NUTRISON [Concomitant]
  26. NUTRISON [Concomitant]
  27. NUTRISON [Concomitant]

REACTIONS (8)
  - ATRIAL FIBRILLATION [None]
  - CARDIAC FAILURE [None]
  - HYPERTHERMIA [None]
  - PRODUCTIVE COUGH [None]
  - PULMONARY CONGESTION [None]
  - PULMONARY OEDEMA [None]
  - SEPTIC SHOCK [None]
  - TOXIC EPIDERMAL NECROLYSIS [None]
